FAERS Safety Report 7903536-1 (Version None)
Quarter: 2011Q4

REPORT INFORMATION
  Report Type: 
  Country: None (occurrence: None)
  Receive Date: 20111027
  Receipt Date: 20110622
  Transmission Date: 20120403
  Serious: Yes (Other)
  Sender: FDA-Public Use
  Company Number: 2011-1992

PATIENT
  Age: 12 Year
  Sex: Male
  Weight: 27 kg

DRUGS (2)
  1. NUTROPIN [Concomitant]
  2. INCRELEX [Suspect]
     Indication: BODY HEIGHT BELOW NORMAL
     Dosage: 22 UNITS (11 UNITS,2 IN 1 D),SUBCUTANEOUS
     Route: 058
     Dates: start: 20110108, end: 20110118

REACTIONS (5)
  - DIZZINESS [None]
  - DISTURBANCE IN ATTENTION [None]
  - GAIT DISTURBANCE [None]
  - FATIGUE [None]
  - HEADACHE [None]
